FAERS Safety Report 6559873-9 (Version None)
Quarter: 2010Q1

REPORT INFORMATION
  Report Type: 
  Country: None (occurrence: None)
  Receive Date: 20100129
  Receipt Date: 20090911
  Transmission Date: 20100710
  Serious: No
  Sender: FDA-Public Use
  Company Number: US-ABBOTT-09P-163-0597346-00

PATIENT
  Sex: Female

DRUGS (6)
  1. HUMIRA [Suspect]
     Indication: PSORIATIC ARTHROPATHY
     Route: 058
     Dates: start: 20090828
  2. HUMIRA [Suspect]
     Indication: PSORIASIS
  3. METHOTREXATE [Concomitant]
     Indication: PSORIATIC ARTHROPATHY
  4. METHOTREXATE [Concomitant]
     Indication: PSORIASIS
  5. FOLIC ACID [Concomitant]
     Indication: PSORIATIC ARTHROPATHY
  6. FOLIC ACID [Concomitant]
     Indication: PSORIASIS

REACTIONS (2)
  - DRUG DOSE OMISSION [None]
  - INJECTION SITE PAIN [None]
